FAERS Safety Report 6898444-1 (Version None)
Quarter: 2010Q3

REPORT INFORMATION
  Report Type: 
  Country: None (occurrence: None)
  Receive Date: 20100802
  Receipt Date: 20071026
  Transmission Date: 20110219
  Serious: No
  Sender: FDA-Public Use
  Company Number: US-PFIZER INC-2007092403

PATIENT
  Age: 66 Year
  Sex: Female

DRUGS (9)
  1. LYRICA [Suspect]
  2. ATENOLOL [Concomitant]
  3. TRAMADOL HYDROCHLORIDE [Concomitant]
  4. LOTREL [Concomitant]
  5. SYNTHROID [Concomitant]
  6. FOSAMAX [Concomitant]
  7. VYTORIN [Concomitant]
  8. VALSARTAN [Concomitant]
  9. GLUCOPHAGE [Concomitant]

REACTIONS (1)
  - OEDEMA PERIPHERAL [None]
